FAERS Safety Report 12404880 (Version 2)
Quarter: 2016Q2

REPORT INFORMATION
  Report Type: Report from Study
  Country: US (occurrence: US)
  Receive Date: 20160525
  Receipt Date: 20160615
  Transmission Date: 20160815
  Serious: Yes (Hospitalization, Other)
  Sender: FDA-Public Use
  Company Number: US-MALLINCKRODT-T201601871

PATIENT
  Age: 73 Year
  Sex: Female

DRUGS (2)
  1. REPOSITORY CORTICOTROPIN INJECTION [Suspect]
     Active Substance: CORTICOTROPIN
     Dosage: 80U EVERY 3 DAYS
     Route: 058
     Dates: start: 20160205
  2. REPOSITORY CORTICOTROPIN INJECTION [Suspect]
     Active Substance: CORTICOTROPIN
     Indication: SARCOIDOSIS
     Dosage: UNK
     Route: 058
     Dates: start: 20151223, end: 20160205

REACTIONS (7)
  - Drug dose omission [Recovered/Resolved]
  - Blood sodium decreased [Recovering/Resolving]
  - Dyspnoea [Not Recovered/Not Resolved]
  - Hallucination [Recovering/Resolving]
  - Oxygen saturation decreased [Recovering/Resolving]
  - Dehydration [Recovering/Resolving]
  - Pulmonary haemorrhage [Recovering/Resolving]

NARRATIVE: CASE EVENT DATE: 2016
